FAERS Safety Report 22534797 (Version 3)
Quarter: 2023Q2

REPORT INFORMATION
  Report Type: Report from Study
  Country: CO (occurrence: CO)
  Receive Date: 20230608
  Receipt Date: 20230623
  Transmission Date: 20230722
  Serious: Yes (Hospitalization)
  Sender: FDA-Public Use
  Company Number: CO-JNJFOC-20230603185

PATIENT
  Sex: Female
  Weight: 61 kg

DRUGS (2)
  1. IMBRUVICA [Suspect]
     Active Substance: IBRUTINIB
     Indication: Chronic lymphocytic leukaemia
     Route: 048
     Dates: start: 20221013
  2. ACALABRUTINIB [Suspect]
     Active Substance: ACALABRUTINIB
     Indication: Chronic lymphocytic leukaemia
     Route: 065

REACTIONS (7)
  - Chronic lymphocytic leukaemia [Recovering/Resolving]
  - Anaemia [Not Recovered/Not Resolved]
  - Haemoglobin decreased [Not Recovered/Not Resolved]
  - Aphasia [Recovering/Resolving]
  - Muscle rigidity [Recovering/Resolving]
  - Mixed incontinence [Recovered/Resolved]
  - Haematological infection [Not Recovered/Not Resolved]
